FAERS Safety Report 25878208 (Version 1)
Quarter: 2025Q4

REPORT INFORMATION
  Report Type: Spontaneous
  Country: GB (occurrence: GB)
  Receive Date: 20251003
  Receipt Date: 20251003
  Transmission Date: 20260118
  Serious: Yes (Other)
  Sender: RANBAXY
  Company Number: GB-MHRA-TPP14403832C10681379YC1758187005908

PATIENT
  Age: 83 Year
  Sex: Male
  Weight: 97 kg

DRUGS (15)
  1. FERROUS SULFATE [Suspect]
     Active Substance: FERROUS SULFATE
     Indication: Ill-defined disorder
     Dosage: 200 MILLIGRAM, BID, ...WITH A VITAMIN C TABLET
     Route: 065
     Dates: start: 20250905
  2. ATORVASTATIN [Concomitant]
     Active Substance: ATORVASTATIN
     Indication: Ill-defined disorder
     Dosage: TAKE ONE DAILY IN EVENING
     Route: 065
     Dates: start: 20241112
  3. FINASTERIDE [Concomitant]
     Active Substance: FINASTERIDE
     Indication: Ill-defined disorder
     Dosage: TAKE ONE DAILY
     Route: 065
     Dates: start: 20241112
  4. LANTUS [Concomitant]
     Active Substance: INSULIN GLARGINE
     Indication: Ill-defined disorder
     Dosage: USE AS DIRECTED
     Route: 065
     Dates: start: 20241112
  5. LINAGLIPTIN [Concomitant]
     Active Substance: LINAGLIPTIN
     Indication: Ill-defined disorder
     Dosage: TAKE ONE DAILY
     Route: 065
     Dates: start: 20241112
  6. METFORMIN [Concomitant]
     Active Substance: METFORMIN HYDROCHLORIDE
     Indication: Ill-defined disorder
     Dosage: 2 TO BE TAKEN TWICE DAILY
     Route: 065
     Dates: start: 20241112
  7. OMEPRAZOLE [Concomitant]
     Active Substance: OMEPRAZOLE
     Indication: Ill-defined disorder
     Dosage: TAKE ONE DAILY
     Route: 065
     Dates: start: 20241112
  8. RAMIPRIL [Concomitant]
     Active Substance: RAMIPRIL
     Indication: Ill-defined disorder
     Dosage: ONE TO BE TAKEN DAILY
     Route: 065
     Dates: start: 20241112
  9. SERTRALINE [Concomitant]
     Active Substance: SERTRALINE HYDROCHLORIDE
     Indication: Ill-defined disorder
     Dosage: TAKE ONE TABLET DAILY
     Route: 065
     Dates: start: 20241112
  10. LOPERAMIDE [Concomitant]
     Active Substance: LOPERAMIDE
     Indication: Ill-defined disorder
     Dosage: TAKE 2 IMMEDIATELY AND THEN ONE AFTER EACH LOOS...
     Route: 065
     Dates: start: 20250829, end: 20250903
  11. HYDROXOCOBALAMIN [Concomitant]
     Active Substance: HYDROXOCOBALAMIN
     Indication: Ill-defined disorder
     Dosage: IM INJECTION AS DIRECTED
     Route: 065
     Dates: start: 20250908, end: 20250911
  12. COCODAMOL [Concomitant]
     Active Substance: ACETAMINOPHEN\CODEINE PHOSPHATE
     Indication: Ill-defined disorder
     Dosage: UP TO TWO TO BE TAKEN FOUR TIMES DAILY
     Route: 065
     Dates: start: 20230908, end: 20250701
  13. Contour [Concomitant]
     Indication: Ill-defined disorder
     Dosage: USE AS DIRECTED
     Route: 065
     Dates: start: 20241112
  14. GLUCORX CAREPOINT [Concomitant]
     Indication: Ill-defined disorder
     Dosage: USE AS DIRECTED
     Route: 065
     Dates: start: 20241112
  15. FERROUS FUMARATE [Concomitant]
     Active Substance: FERROUS FUMARATE
     Indication: Ill-defined disorder
     Dosage: TAKE ONE DAILY
     Route: 065
     Dates: start: 20250918

REACTIONS (1)
  - Diarrhoea [Recovered/Resolved]
